FAERS Safety Report 10195420 (Version 1)
Quarter: 2014Q2

REPORT INFORMATION
  Report Type: Report from Study
  Country: US (occurrence: US)
  Receive Date: 20140526
  Receipt Date: 20140526
  Transmission Date: 20141212
  Serious: Yes (Hospitalization)
  Sender: FDA-Public Use
  Company Number: US-TAKEDA-2014TUS004120

PATIENT
  Sex: Female

DRUGS (1)
  1. DEXILANT [Suspect]
     Dosage: UNK
     Route: 048
     Dates: end: 2014

REACTIONS (1)
  - Gastrointestinal disorder [Unknown]
